FAERS Safety Report 13266817 (Version 3)
Quarter: 2017Q4

REPORT INFORMATION
  Report Type: Report from Study
  Country: JP (occurrence: JP)
  Receive Date: 20170224
  Receipt Date: 20171013
  Transmission Date: 20180320
  Serious: Yes (Death, Other)
  Sender: FDA-Public Use
  Company Number: JP-TAKEDA-2017TJP003762

PATIENT
  Age: 90 Year
  Sex: Female
  Weight: 43.9 kg

DRUGS (5)
  1. LIPITOR [Concomitant]
     Active Substance: ATORVASTATIN CALCIUM
     Dosage: UNK
     Route: 048
  2. ALOGLIPTIN. [Suspect]
     Active Substance: ALOGLIPTIN
     Indication: TYPE 2 DIABETES MELLITUS
     Dosage: 12.5 MG, QD
     Route: 048
     Dates: start: 20121219, end: 20151225
  3. STARSIS [Concomitant]
     Active Substance: NATEGLINIDE
     Indication: TYPE 2 DIABETES MELLITUS
     Dosage: 90 MG, UNK
     Route: 048
  4. DIOVAN [Concomitant]
     Active Substance: VALSARTAN
     Dosage: UNK
     Route: 048
  5. KINEDAK [Concomitant]
     Active Substance: EPALRESTAT
     Dosage: UNK
     Route: 048

REACTIONS (1)
  - Pancreatic carcinoma [Fatal]

NARRATIVE: CASE EVENT DATE: 20151006
